FAERS Safety Report 8478564-0 (Version None)
Quarter: 2012Q2

REPORT INFORMATION
  Report Type: 
  Country: None (occurrence: None)
  Receive Date: 20120618
  Receipt Date: 20120614
  Transmission Date: 20120825
  Serious: Yes (Death)
  Sender: FDA-Public Use
  Company Number: 2010SP032429

PATIENT
  Age: 42 Year
  Sex: Female

DRUGS (5)
  1. MIRTAZAPINE [Suspect]
     Indication: PRODUCT USED FOR UNKNOWN INDICATION
  2. VALPROIC ACID [Concomitant]
  3. FLUOXETINE HCL [Suspect]
     Indication: PRODUCT USED FOR UNKNOWN INDICATION
  4. CODEINE SULFATE [Concomitant]
  5. MORPHINE [Concomitant]

REACTIONS (4)
  - NEPHROSCLEROSIS [None]
  - SEROTONIN SYNDROME [None]
  - HEPATIC STEATOSIS [None]
  - TOXICITY TO VARIOUS AGENTS [None]
